FAERS Safety Report 5929255-9 (Version None)
Quarter: 2008Q4

REPORT INFORMATION
  Report Type: 
  Country: None (occurrence: None)
  Receive Date: 20081023
  Receipt Date: 20081023
  Transmission Date: 20090506
  Serious: Yes (Other)
  Sender: FDA-Public Use
  Company Number: None

PATIENT
  Age: 59 Year
  Sex: Male
  Weight: 74.8435 kg

DRUGS (1)
  1. LEVAQUIN [Suspect]
     Indication: FUNGAL INFECTION
     Dosage: 1 DAILY PO
     Route: 048
     Dates: start: 20081021, end: 20081021

REACTIONS (1)
  - TENDONITIS [None]
